FAERS Safety Report 5009758-4 (Version None)
Quarter: 2006Q2

REPORT INFORMATION
  Report Type: 
  Country: None (occurrence: None)
  Receive Date: 20060524
  Receipt Date: 20060512
  Transmission Date: 20061013
  Serious: Yes (Death)
  Sender: FDA-Public Use
  Company Number: IT-ROCHE-447822

PATIENT
  Age: 7 Year
  Sex: Female

DRUGS (2)
  1. CEFTRIAXONE SODIUM [Suspect]
     Indication: CONGENITAL CYTOMEGALOVIRUS INFECTION
     Route: 042
     Dates: start: 20030715
  2. CEFTRIAXONE SODIUM [Suspect]
     Route: 042

REACTIONS (9)
  - CARDIAC ARREST [None]
  - CYANOSIS [None]
  - FALL [None]
  - HAEMOLYSIS [None]
  - LOSS OF CONSCIOUSNESS [None]
  - METABOLIC ACIDOSIS [None]
  - MULTI-ORGAN FAILURE [None]
  - PALLOR [None]
  - SHOCK [None]
